FAERS Safety Report 15916065 (Version 1)
Quarter: 2019Q1

REPORT INFORMATION
  Report Type: Report from Study
  Country: KR (occurrence: KR)
  Receive Date: 20190204
  Receipt Date: 20190204
  Transmission Date: 20190417
  Serious: No
  Sender: FDA-Public Use
  Company Number: KR-B.I. PHARMACEUTICALS,INC./RIDGEFIELD-2019-BI-003741

PATIENT
  Age: 42 Year
  Sex: Male
  Weight: 158 kg

DRUGS (8)
  1. ALDACTONE [Concomitant]
     Active Substance: SPIRONOLACTONE
     Indication: CONGESTIVE CARDIOMYOPATHY
     Route: 048
     Dates: start: 20160107
  2. DIGOSIN [Concomitant]
     Active Substance: DIGOXIN
     Indication: CONGESTIVE CARDIOMYOPATHY
     Route: 048
     Dates: start: 20160122
  3. FURIX [Concomitant]
     Active Substance: FUROSEMIDE
     Indication: CONGESTIVE CARDIOMYOPATHY
     Route: 048
     Dates: start: 20160324, end: 20190127
  4. DILATREND [Concomitant]
     Active Substance: CARVEDILOL
     Indication: HYPERTENSION
     Route: 048
     Dates: start: 20160119, end: 20190127
  5. PROCORALAN [Concomitant]
     Active Substance: IVABRADINE
     Indication: CONGESTIVE CARDIOMYOPATHY
     Route: 048
     Dates: start: 20181107
  6. EMPAGLIFLOZIN [Suspect]
     Active Substance: EMPAGLIFLOZIN
     Indication: TYPE 2 DIABETES MELLITUS
     Route: 048
     Dates: start: 20181107
  7. LIPILOU [Concomitant]
     Indication: CORONARY ARTERY DISEASE
     Route: 048
     Dates: start: 20160108
  8. ENTRESTO [Concomitant]
     Active Substance: SACUBITRIL\VALSARTAN
     Indication: CONGESTIVE CARDIOMYOPATHY
     Route: 048
     Dates: start: 20181024

REACTIONS (1)
  - Pollakiuria [Not Recovered/Not Resolved]

NARRATIVE: CASE EVENT DATE: 201811
